FAERS Safety Report 17303048 (Version 1)
Quarter: 2020Q1

REPORT INFORMATION
  Report Type: Spontaneous
  Country: JP (occurrence: JP)
  Receive Date: 20200122
  Receipt Date: 20200122
  Transmission Date: 20200409
  Serious: Yes (Hospitalization)
  Sender: FDA-Public Use
  Company Number: JP-EISAI MEDICAL RESEARCH-EC-2020-068599

PATIENT
  Age: 84 Year
  Sex: Female

DRUGS (4)
  1. LENVIMA [Suspect]
     Active Substance: LENVATINIB
     Indication: PAPILLARY THYROID CANCER
     Route: 048
     Dates: start: 20180115, end: 20180121
  2. LENVIMA [Suspect]
     Active Substance: LENVATINIB
     Route: 048
     Dates: start: 20180122, end: 20180508
  3. LENVIMA [Suspect]
     Active Substance: LENVATINIB
     Dosage: ALTERNATE DAY DOSING OF 4 MG AND 8 MG
     Route: 048
     Dates: start: 20181106, end: 20190115
  4. LENVIMA [Suspect]
     Active Substance: LENVATINIB
     Route: 048
     Dates: start: 20180522, end: 20180727

REACTIONS (4)
  - Protein urine present [Unknown]
  - Blood pressure increased [Unknown]
  - Vomiting [Unknown]
  - Renal impairment [Unknown]

NARRATIVE: CASE EVENT DATE: 20180122
